FAERS Safety Report 8427474-3 (Version None)
Quarter: 2012Q2

REPORT INFORMATION
  Report Type: 
  Country: None (occurrence: None)
  Receive Date: 20120611
  Receipt Date: 20120531
  Transmission Date: 20120825
  Serious: Yes (Hospitalization)
  Sender: FDA-Public Use
  Company Number: IT-ELI_LILLY_AND_COMPANY-IT201205003736

PATIENT
  Sex: Female
  Weight: 75.964 kg

DRUGS (3)
  1. CARBOPLATIN [Concomitant]
     Dosage: 50 MG, QD
     Route: 042
     Dates: start: 20120329, end: 20120329
  2. CARBOPLATIN [Concomitant]
     Indication: LUNG ADENOCARCINOMA
     Dosage: 350 MG, UNK
     Route: 042
     Dates: start: 20120329, end: 20120329
  3. ALIMTA [Suspect]
     Indication: NON-SMALL CELL LUNG CANCER
     Dosage: 850 MG, UNK
     Dates: start: 20120329, end: 20120329

REACTIONS (2)
  - PANCREATITIS ACUTE [None]
  - CHOLELITHIASIS [None]
